FAERS Safety Report 14164714 (Version 3)
Quarter: 2017Q4

REPORT INFORMATION
  Report Type: Spontaneous
  Country: US (occurrence: US)
  Receive Date: 20171107
  Receipt Date: 20171127
  Transmission Date: 20180321
  Serious: No
  Sender: FDA-Public Use
  Company Number: US-PFIZER INC-2017479241

PATIENT
  Age: 81 Year
  Sex: Female

DRUGS (1)
  1. XANAX [Suspect]
     Active Substance: ALPRAZOLAM
     Dosage: A HALF PILL

REACTIONS (3)
  - Tremor [Unknown]
  - Dyskinesia [Unknown]
  - Somnolence [Unknown]
